FAERS Safety Report 11475576 (Version 1)
Quarter: 2015Q3

REPORT INFORMATION
  Report Type: Spontaneous
  Country: US (occurrence: US)
  Receive Date: 20150909
  Receipt Date: 20150909
  Transmission Date: 20151125
  Serious: No
  Sender: FDA-Public Use
  Company Number: US-ACTELION PHARMACEUTICALS US, INC.-A-US2015-120326

PATIENT
  Age: 77 Year
  Sex: Male

DRUGS (2)
  1. CLOBETASOL [Concomitant]
     Active Substance: CLOBETASOL
     Dosage: UNK
  2. VALCHLOR [Suspect]
     Active Substance: MECHLORETHAMINE
     Indication: NEOPLASM
     Dosage: UNK
     Route: 061
     Dates: start: 20140513, end: 20150626

REACTIONS (1)
  - Cough [Recovering/Resolving]
